FAERS Safety Report 9981220 (Version 1)
Quarter: 2014Q1

REPORT INFORMATION
  Report Type: Spontaneous
  Country: GB (occurrence: GB)
  Receive Date: 20140307
  Receipt Date: 20140307
  Transmission Date: 20141002
  Serious: Yes (Life-Threatening, Hospitalization)
  Sender: FDA-Public Use
  Company Number: GB-MYLANLABS-2014S1004334

PATIENT
  Age: 89 Year
  Sex: Female
  Weight: 47 kg

DRUGS (7)
  1. MIRTAZAPINE [Suspect]
     Indication: DEPRESSION
     Route: 048
     Dates: start: 20140209, end: 20140209
  2. DIHYDROCODEINE [Suspect]
     Indication: PAIN
     Route: 048
     Dates: start: 20140204, end: 20140209
  3. CLOPIDOGREL [Concomitant]
  4. LIDOCAINE [Concomitant]
  5. NITROFURANTOIN [Concomitant]
  6. PARACETAMOL [Concomitant]
  7. SIMVASTATIN [Concomitant]

REACTIONS (1)
  - Anaphylactic reaction [Recovered/Resolved]
